FAERS Safety Report 23739636 (Version 1)
Quarter: 2024Q2

REPORT INFORMATION
  Report Type: Spontaneous
  Country: JP (occurrence: JP)
  Receive Date: 20240413
  Receipt Date: 20240413
  Transmission Date: 20240716
  Serious: Yes (Other)
  Sender: FDA-Public Use
  Company Number: JP-TEVA-VS-3180663

PATIENT
  Age: 53 Year
  Sex: Male

DRUGS (7)
  1. LANSOPRAZOLE [Suspect]
     Active Substance: LANSOPRAZOLE
     Indication: Gastrooesophageal reflux disease
     Route: 048
     Dates: start: 20230829, end: 20231111
  2. ENALAPRIL [Concomitant]
     Active Substance: ENALAPRIL
     Dosage: DOSAGE IS UNKNOWN
     Route: 048
     Dates: start: 20230719
  3. PEMETREXED [Concomitant]
     Active Substance: PEMETREXED
     Dosage: PEMETREXED SOLUTION FOR I.V. INFUSION NK , DOSAGE IS UNKNOWN
     Route: 042
     Dates: start: 20230830
  4. KEYTRUDA [Concomitant]
     Active Substance: PEMBROLIZUMAB
     Dosage: KEYTRUDA INJECTION, DOSAGE IS UNKNOWN
     Route: 042
     Dates: start: 20230830, end: 20231011
  5. AMLODIPINE [Concomitant]
     Active Substance: AMLODIPINE BESYLATE
     Dosage: DOSAGE IS UNKNOWN
     Route: 048
     Dates: start: 20230719
  6. VITAMINS [Concomitant]
     Active Substance: VITAMINS
     Dosage: DOSAGE IS UNKNOWN
     Route: 048
     Dates: start: 20230816
  7. CARBOPLATIN [Concomitant]
     Active Substance: CARBOPLATIN
     Dosage: CARBOPLATIN INJECTION NK ,DOSAGE IS UNKNOWN
     Route: 042
     Dates: start: 20230830

REACTIONS (1)
  - Colitis microscopic [Recovering/Resolving]

NARRATIVE: CASE EVENT DATE: 20231025
